FAERS Safety Report 8236035-0 (Version None)
Quarter: 2012Q1

REPORT INFORMATION
  Report Type: 
  Country: None (occurrence: None)
  Receive Date: 20120326
  Receipt Date: 20120319
  Transmission Date: 20120608
  Serious: Yes (Hospitalization)
  Sender: FDA-Public Use
  Company Number: JP-VERTEX PHARMACEUTICALS INC.-AE-2012-004100

PATIENT
  Age: 68 Year
  Sex: Female

DRUGS (15)
  1. PEGINTERFERON ALFA-2A [Concomitant]
     Dates: start: 20120217, end: 20120224
  2. REBETOL [Concomitant]
     Indication: HEPATITIS C
     Dates: start: 20120125, end: 20120211
  3. URSO 250 [Concomitant]
     Route: 048
  4. LEVOTHYROXINE SODIUM [Concomitant]
     Route: 048
  5. TELAVIC (TELAPREVIR) [Suspect]
     Indication: HEPATITIS C
     Route: 048
     Dates: start: 20120125, end: 20120129
  6. REBETOL [Concomitant]
     Dates: start: 20120211, end: 20120302
  7. PEGINTERFERON ALFA-2A [Concomitant]
     Indication: HEPATITIS C
     Route: 051
     Dates: start: 20120125, end: 20120201
  8. SELBEX [Concomitant]
     Route: 048
  9. TELAVIC (TELAPREVIR) [Suspect]
     Dates: start: 20120301
  10. REBETOL [Concomitant]
  11. LANSOPRAZOLE [Concomitant]
     Route: 048
  12. PEGINTERFERON ALFA-2A [Concomitant]
     Dates: start: 20120302
  13. TALION [Concomitant]
     Route: 048
  14. DIOVAN [Concomitant]
     Route: 048
  15. LOXONIN [Concomitant]
     Route: 051

REACTIONS (1)
  - SUDDEN HEARING LOSS [None]
